FAERS Safety Report 8954144 (Version 1)
Quarter: 2012Q4

REPORT INFORMATION
  Report Type: 
  Country: GB (occurrence: GB)
  Receive Date: 20121207
  Receipt Date: 20121207
  Transmission Date: 20130627
  Serious: Yes (Life-Threatening, Hospitalization)
  Sender: FDA-Public Use
  Company Number: GB-ELI_LILLY_AND_COMPANY-GB201212000222

PATIENT
  Age: 58 Year
  Sex: Male
  Weight: 85 kg

DRUGS (3)
  1. CIALIS [Suspect]
     Indication: ERECTILE DYSFUNCTION
     Dosage: 20 mg, unknown
     Route: 048
     Dates: start: 20120928, end: 20120928
  2. LISINOPRIL [Concomitant]
     Indication: HYPERTENSION
  3. TOSTRAN [Concomitant]
     Indication: HYPOGONADISM
     Dosage: 40 mg, qd

REACTIONS (2)
  - Subarachnoid haemorrhage [Recovered/Resolved]
  - Headache [Recovered/Resolved]
